FAERS Safety Report 7087025-5 (Version None)
Quarter: 2010Q4

REPORT INFORMATION
  Report Type: 
  Country: None (occurrence: None)
  Receive Date: 20101106
  Receipt Date: 20101008
  Transmission Date: 20110411
  Serious: No
  Sender: FDA-Public Use
  Company Number: US-WYE-H18083010

PATIENT
  Age: 26 Year
  Sex: Female
  Weight: 49.94 kg

DRUGS (1)
  1. ADVIL COLD AND SINUS [Suspect]
     Indication: NASOPHARYNGITIS
     Dosage: SHE BEGINS WITH TWO CAPLETS IN THE MORNING THEN ONE CAPLET APPROXIMATELY EVERY 5 TO 6 HOURS
     Route: 048
     Dates: start: 20101006

REACTIONS (1)
  - DRY MOUTH [None]
